FAERS Safety Report 24444118 (Version 2)
Quarter: 2024Q4

REPORT INFORMATION
  Report Type: Report from Study
  Country: ZA (occurrence: ZA)
  Receive Date: 20241016
  Receipt Date: 20241017
  Transmission Date: 20250114
  Serious: No
  Sender: ROCHE
  Company Number: ZA-ROCHE-2328461

PATIENT
  Sex: Male

DRUGS (1)
  1. MABTHERA [Suspect]
     Active Substance: RITUXIMAB
     Indication: Rheumatoid arthritis
     Dosage: NEXT DOSE IN 6 MONTHS LATER? FREQUENCY TEXT:DAY 1 AND DAY 15
     Route: 041
     Dates: start: 201202, end: 20191114

REACTIONS (8)
  - Rheumatoid arthritis [Unknown]
  - Rheumatoid arthritis [Unknown]
  - Haemoglobin increased [Unknown]
  - Rheumatoid arthritis [Unknown]
  - Off label use [Unknown]
  - Haemoglobin increased [Unknown]
  - Alanine aminotransferase increased [Unknown]
  - Blood creatinine increased [Unknown]

NARRATIVE: CASE EVENT DATE: 20190528
